FAERS Safety Report 7833551-8 (Version None)
Quarter: 2011Q4

REPORT INFORMATION
  Report Type: 
  Country: None (occurrence: None)
  Receive Date: 20111020
  Receipt Date: 20111010
  Transmission Date: 20120403
  Serious: Yes (Hospitalization, Other)
  Sender: FDA-Public Use
  Company Number: 2011P1009414

PATIENT
  Age: 23 Year
  Sex: Male

DRUGS (5)
  1. PROPOFOL [Suspect]
     Indication: TOOTH EXTRACTION
     Dosage: 60 MG; X1; IV
     Route: 042
  2. GLYCOPYRROLATE [Concomitant]
  3. KETAMINE HCL [Suspect]
     Indication: TOOTH EXTRACTION
     Dosage: 50 MG; X1; IV
     Route: 042
  4. FENTANYL [Suspect]
     Indication: TOOTH EXTRACTION
     Dosage: 150 MCG; X1; IV
     Route: 042
  5. MIDAZOLAM [Suspect]
     Indication: TOOTH EXTRACTION
     Dosage: 9 MG; X1; IV
     Route: 042

REACTIONS (5)
  - DRUG INEFFECTIVE [None]
  - CONVERSION DISORDER [None]
  - ABASIA [None]
  - GAIT DISTURBANCE [None]
  - ANAESTHETIC COMPLICATION [None]
